FAERS Safety Report 8255689-6 (Version None)
Quarter: 2012Q2

REPORT INFORMATION
  Report Type: 
  Country: None (occurrence: None)
  Receive Date: 20120403
  Receipt Date: 20120403
  Transmission Date: 20120825
  Serious: Yes (Hospitalization)
  Sender: FDA-Public Use
  Company Number: None

PATIENT
  Age: 63 Year
  Sex: Female
  Weight: 53.07 kg

DRUGS (1)
  1. DEXILANT [Suspect]
     Dosage: ?
     Dates: start: 20100820, end: 20101205

REACTIONS (4)
  - WEIGHT DECREASED [None]
  - COLITIS [None]
  - VOMITING [None]
  - DEHYDRATION [None]
